FAERS Safety Report 15327207 (Version 1)
Quarter: 2018Q4

REPORT INFORMATION
  Report Type: Spontaneous
  Country: FR (occurrence: FR)
  Receive Date: 20180828
  Receipt Date: 20180828
  Transmission Date: 20190204
  Serious: Yes (Other)
  Sender: FDA-Public Use
  Company Number: FR-TEVA-2018-FR-948101

PATIENT
  Age: 37 Year
  Sex: Female

DRUGS (6)
  1. TRAMADOL (CHLORHYDRATE DE) [Suspect]
     Active Substance: TRAMADOL HYDROCHLORIDE
     Indication: PAIN
     Dosage: 112.5 MILLIGRAM DAILY; 37.5 MG X 3 / D + CF COMMENT
     Route: 048
     Dates: start: 20160704, end: 20160706
  2. GYNO PEVARYL LP 150 MG, OVULE ? LIB?RATION PROLONG?E [Suspect]
     Active Substance: ECONAZOLE NITRATE
     Indication: FUNGAL INFECTION
     Dosage: 150 MILLIGRAM DAILY;
     Route: 067
     Dates: start: 20160625, end: 20160625
  3. ATARAX [Suspect]
     Active Substance: HYDROXYZINE HYDROCHLORIDE
     Indication: ANXIETY
     Dosage: 75 MILLIGRAM DAILY; 25 MG X 3 / DAY + CF COMMENT
     Route: 048
     Dates: start: 20160703, end: 20160706
  4. PARACETAMOL [Suspect]
     Active Substance: ACETAMINOPHEN
     Indication: PAIN
     Dosage: 975 MILLIGRAM DAILY; 325 MG X 3 / DAY + CF COMMENT
     Route: 048
     Dates: start: 20160704, end: 20160706
  5. VALACICLOVIR [Suspect]
     Active Substance: VALACYCLOVIR HYDROCHLORIDE
     Indication: INFECTION
     Dosage: 1000 MILLIGRAM DAILY;
     Route: 048
     Dates: start: 20160704, end: 20160711
  6. MONURIL [Suspect]
     Active Substance: FOSFOMYCIN TROMETHAMINE
     Indication: URINARY TRACT INFECTION
     Dosage: 3 GRAM DAILY;
     Route: 048
     Dates: start: 20160710, end: 20160710

REACTIONS (1)
  - Abortion spontaneous [Not Recovered/Not Resolved]

NARRATIVE: CASE EVENT DATE: 20160830
